FAERS Safety Report 9657209 (Version 1)
Quarter: 2013Q4

REPORT INFORMATION
  Report Type: Spontaneous
  Country: US (occurrence: US)
  Receive Date: 20131030
  Receipt Date: 20131030
  Transmission Date: 20140711
  Serious: No
  Sender: FDA-Public Use
  Company Number: US-PFIZER INC-2013306178

PATIENT
  Age: 31 Year
  Sex: Male
  Weight: 88.44 kg

DRUGS (7)
  1. ATGAM [Suspect]
     Indication: APLASTIC ANAEMIA
     Dosage: 3400 MG, 1X/DAY
     Dates: start: 20131021, end: 20131023
  2. ACYCLOVIR [Concomitant]
     Indication: IMMUNOSUPPRESSANT DRUG THERAPY
     Dosage: 400 MG, 2X/DAY
     Dates: start: 20131021
  3. CYCLOSPORINE [Concomitant]
     Dosage: 400 MG, 2X/DAY
     Dates: start: 20131021
  4. FOLIC ACID [Concomitant]
     Dosage: 1 MG, 1X/DAY
     Dates: start: 20131021
  5. LANSOPRAZOLE [Concomitant]
     Dosage: 30 MG, 1X/DAY
     Dates: start: 20131021
  6. VORICONAZOLE [Concomitant]
     Indication: ANTIFUNGAL TREATMENT
     Dosage: 200 MG, 2X/DAY
     Dates: start: 20131021
  7. METHYLPREDNISOLONE [Concomitant]
     Dosage: 1000 MG, UNK

REACTIONS (1)
  - Liver function test abnormal [Not Recovered/Not Resolved]
